FAERS Safety Report 4917786-X (Version None)
Quarter: 2006Q1

REPORT INFORMATION
  Report Type: 
  Country: None (occurrence: None)
  Receive Date: 20060221
  Receipt Date: 20060215
  Transmission Date: 20060701
  Serious: Yes (Other)
  Sender: FDA-Public Use
  Company Number: AU-SANOFI-SYNTHELABO-A01200601158

PATIENT

DRUGS (1)
  1. ELOXATIN [Suspect]
     Route: 042

REACTIONS (1)
  - PANCYTOPENIA [None]
